FAERS Safety Report 10101604 (Version 1)
Quarter: 2014Q2

REPORT INFORMATION
  Report Type: Spontaneous
  Country: US (occurrence: US)
  Receive Date: 20140424
  Receipt Date: 20140424
  Transmission Date: 20141212
  Serious: Yes (Hospitalization)
  Sender: FDA-Public Use
  Company Number: US-JNJFOC-20140416268

PATIENT
  Sex: Female

DRUGS (1)
  1. XARELTO [Suspect]
     Indication: DEEP VEIN THROMBOSIS
     Dosage: 1 TABLET 2 TIMES A DAY
     Route: 048
     Dates: start: 201403, end: 201403

REACTIONS (1)
  - Pulmonary embolism [Unknown]
